FAERS Safety Report 9889671 (Version 1)
Quarter: 2014Q1

REPORT INFORMATION
  Report Type: Spontaneous
  Country: US (occurrence: US)
  Receive Date: 20140211
  Receipt Date: 20140211
  Transmission Date: 20141002
  Serious: Yes (Other)
  Sender: FDA-Public Use
  Company Number: US-PFIZER INC-2014037136

PATIENT
  Sex: Male
  Weight: 56.69 kg

DRUGS (4)
  1. LIPITOR [Suspect]
     Indication: BLOOD CHOLESTEROL INCREASED
     Dosage: 10 MG, DAILY
  2. ATROPINE [Concomitant]
     Indication: PROPHYLAXIS
     Dosage: 81 MG, DAILY
  3. ATORVASTATIN CALCIUM [Concomitant]
     Dosage: 10 MG, DAILY
  4. CHLOROTHIAZIDE [Concomitant]
     Dosage: UNK

REACTIONS (1)
  - Myocardial infarction [Unknown]
